FAERS Safety Report 25112130 (Version 1)
Quarter: 2025Q1

REPORT INFORMATION
  Report Type: Spontaneous
  Country: FR (occurrence: FR)
  Receive Date: 20250324
  Receipt Date: 20250324
  Transmission Date: 20250409
  Serious: No
  Sender: TOLMAR
  Company Number: FR-RECGATEWAY-2025001360

PATIENT
  Age: 82 Year
  Sex: Male

DRUGS (1)
  1. ELIGARD [Suspect]
     Active Substance: LEUPROLIDE ACETATE
     Indication: Product used for unknown indication
     Dates: start: 20250226

REACTIONS (3)
  - Intercepted product preparation error [Unknown]
  - Device leakage [Unknown]
  - Product physical consistency issue [Unknown]

NARRATIVE: CASE EVENT DATE: 20250226
